FAERS Safety Report 13886723 (Version 1)
Quarter: 2017Q3

REPORT INFORMATION
  Report Type: Spontaneous
  Country: FR (occurrence: FR)
  Receive Date: 20170821
  Receipt Date: 20170821
  Transmission Date: 20171127
  Serious: Yes (Death, Hospitalization)
  Sender: FDA-Public Use
  Company Number: FR-JNJFOC-20170815406

PATIENT
  Age: 69 Year
  Sex: Female

DRUGS (13)
  1. DUROGESIC [Suspect]
     Active Substance: FENTANYL
     Indication: PAIN
     Route: 062
  2. ACTISKENAN [Suspect]
     Active Substance: MORPHINE SULFATE
     Indication: PRODUCT USED FOR UNKNOWN INDICATION
     Dosage: IF NEEDED
     Route: 065
  3. PREDNISONE. [Concomitant]
     Active Substance: PREDNISONE
     Dosage: 3 CP IN THE MORNING
     Route: 065
  4. ACIDE FOLIQUE [Concomitant]
     Active Substance: FOLIC ACID
     Dosage: IN THE MORNING
     Route: 065
  5. DUROGESIC [Suspect]
     Active Substance: FENTANYL
     Indication: PAIN
     Route: 062
     Dates: start: 20170616, end: 20170618
  6. XANAX [Concomitant]
     Active Substance: ALPRAZOLAM
     Route: 065
  7. LYRICA [Concomitant]
     Active Substance: PREGABALIN
     Route: 065
  8. GILOTRIF [Concomitant]
     Active Substance: AFATINIB
     Dosage: IN THE MORNING
     Route: 065
  9. ACTISKENAN [Suspect]
     Active Substance: MORPHINE SULFATE
     Indication: PRODUCT USED FOR UNKNOWN INDICATION
     Route: 065
  10. PARACETAMOL [Concomitant]
     Active Substance: ACETAMINOPHEN
     Dosage: 2-4 PER DAY
     Route: 065
  11. INNOHEP [Concomitant]
     Active Substance: TINZAPARIN SODIUM
     Dosage: 13000UI THE MORNING
     Route: 065
  12. ZOPHREN [Concomitant]
     Active Substance: ONDANSETRON
     Dosage: 1 CP
     Route: 065
  13. KARDEGIC [Concomitant]
     Active Substance: ASPIRIN LYSINE
     Route: 065

REACTIONS (4)
  - Dyspnoea [Fatal]
  - Somnolence [Recovered/Resolved]
  - Neoplasm progression [Fatal]
  - Weight increased [Recovered/Resolved]

NARRATIVE: CASE EVENT DATE: 20170616
